FAERS Safety Report 21825442 (Version 1)
Quarter: 2023Q1

REPORT INFORMATION
  Report Type: Spontaneous
  Country: US (occurrence: None)
  Receive Date: 20230105
  Receipt Date: 20230105
  Transmission Date: 20230418
  Serious: No
  Sender: FDA-Public Use
  Company Number: None

PATIENT
  Age: 63 Year
  Sex: Female
  Weight: 56.79 kg

DRUGS (8)
  1. CYCLOPHOSPHAMIDE [Suspect]
     Active Substance: CYCLOPHOSPHAMIDE
     Indication: Ovarian cancer
     Dosage: 50MG ONCE DAILY ORAL
     Route: 048
     Dates: start: 202209, end: 20230104
  2. AVASTIN [Concomitant]
     Active Substance: BEVACIZUMAB
  3. DEXAMETHASONE [Concomitant]
     Active Substance: DEXAMETHASONE
  4. SODIUM CHLORIDE [Concomitant]
     Active Substance: SODIUM CHLORIDE
  5. SODIUM CHLORIDE [Concomitant]
     Active Substance: SODIUM CHLORIDE
  6. VITAMIN B COMPLEX C [Concomitant]
  7. VITAMIN D [Concomitant]
     Active Substance: VITAMIN D NOS
  8. ZOFRAN [Concomitant]
     Active Substance: ONDANSETRON HYDROCHLORIDE

REACTIONS (2)
  - Lymphadenopathy [None]
  - Therapy cessation [None]
